FAERS Safety Report 15572821 (Version 1)
Quarter: 2018Q4

REPORT INFORMATION
  Report Type: Report from Study
  Country: US (occurrence: US)
  Receive Date: 20181031
  Receipt Date: 20181031
  Transmission Date: 20190205
  Serious: Yes (Hospitalization)
  Sender: FDA-Public Use
  Company Number: US-ACTELION-A-US2018-180830

PATIENT
  Age: 89 Year
  Sex: Female

DRUGS (7)
  1. BENZONATATE. [Concomitant]
     Active Substance: BENZONATATE
     Dosage: 100 MG, TID
     Route: 048
     Dates: start: 20180913
  2. OPSUMIT [Suspect]
     Active Substance: MACITENTAN
     Indication: PULMONARY ARTERIAL HYPERTENSION
     Dosage: 10 MG, QD
     Route: 048
     Dates: start: 20181005, end: 20181009
  3. ADEMPAS [Concomitant]
     Active Substance: RIOCIGUAT
     Dosage: 1.5 MG, TID
     Dates: start: 20181005
  4. SENNA [Concomitant]
     Active Substance: SENNA LEAF\SENNOSIDES\SENNOSIDES A AND B
     Dosage: 8.6 MG, BID
     Dates: start: 201810
  5. FAMOTIDINE. [Concomitant]
     Active Substance: FAMOTIDINE
     Dosage: 40 MG, QD
     Dates: start: 20180924
  6. MONTELUKAST [Concomitant]
     Active Substance: MONTELUKAST SODIUM
     Dosage: 10 MG, QD
     Dates: start: 20180913
  7. VITAMIN B COMPLEX [Concomitant]
     Active Substance: CYANOCOBALAMIN\DEXPANTHENOL\NIACINAMIDE\PYRIDOXINE HYDROCHLORIDE\RIBOFLAVIN 5^-PHOSPHATE SODIUM\THIAMINE HYDROCHLORIDE\VITAMIN B COMPLEX
     Dosage: UNK MG, QD
     Dates: start: 201809

REACTIONS (6)
  - Cough [Not Recovered/Not Resolved]
  - Agitation [Not Recovered/Not Resolved]
  - Hospice care [Unknown]
  - Pain [Not Recovered/Not Resolved]
  - Gait disturbance [Not Recovered/Not Resolved]
  - Asthenia [Not Recovered/Not Resolved]

NARRATIVE: CASE EVENT DATE: 201810
